FAERS Safety Report 10932382 (Version 4)
Quarter: 2015Q4

REPORT INFORMATION
  Report Type: Spontaneous
  Country: US (occurrence: US)
  Receive Date: 20150320
  Receipt Date: 20151210
  Transmission Date: 20160304
  Serious: No
  Sender: FDA-Public Use
  Company Number: US-JNJFOC-20141201466

PATIENT
  Age: 13 Year
  Sex: Male
  Weight: 124.74 kg

DRUGS (4)
  1. RISPERDAL [Suspect]
     Active Substance: RISPERIDONE
     Indication: DEPRESSION
     Dosage: VARYING DOSES OF 0.5MG AND 1MG TWICE DAILY.
     Route: 048
     Dates: start: 200103, end: 200108
  2. RISPERDAL [Suspect]
     Active Substance: RISPERIDONE
     Indication: SCHIZOPHRENIA
     Dosage: VARYING DOSES OF 0.5MG AND 1MG TWICE DAILY.
     Route: 048
     Dates: start: 200103, end: 200108
  3. RISPERDAL [Suspect]
     Active Substance: RISPERIDONE
     Indication: ATTENTION DEFICIT/HYPERACTIVITY DISORDER
     Dosage: VARYING DOSES OF 0.5MG AND 1MG TWICE DAILY.
     Route: 048
     Dates: start: 200103, end: 200108
  4. RISPERDAL [Suspect]
     Active Substance: RISPERIDONE
     Indication: ANTISOCIAL PERSONALITY DISORDER
     Dosage: VARYING DOSES OF 0.5MG AND 1MG TWICE DAILY.
     Route: 048
     Dates: start: 200103, end: 200108

REACTIONS (3)
  - Emotional disorder [Unknown]
  - Gynaecomastia [Unknown]
  - Overweight [Unknown]

NARRATIVE: CASE EVENT DATE: 20010724
